FAERS Safety Report 9728740 (Version 1)
Quarter: 2013Q4

REPORT INFORMATION
  Report Type: Spontaneous
  Country: US (occurrence: US)
  Receive Date: 20131204
  Receipt Date: 20131204
  Transmission Date: 20140711
  Serious: No
  Sender: FDA-Public Use
  Company Number: US-009507513-1311USA004431

PATIENT
  Age: 32 Year
  Sex: Female
  Weight: 72.56 kg

DRUGS (1)
  1. NUVARING [Suspect]
     Indication: CONTRACEPTION
     Dosage: 3 WEEKS IN ONE WEEK RING FREE BREAK
     Route: 067
     Dates: start: 201209

REACTIONS (4)
  - Menorrhagia [Unknown]
  - Device expulsion [Unknown]
  - Dysmenorrhoea [Unknown]
  - Withdrawal bleed [Unknown]
